FAERS Safety Report 13277200 (Version 1)
Quarter: 2017Q1

REPORT INFORMATION
  Report Type: Spontaneous
  Country: US (occurrence: US)
  Receive Date: 20170228
  Receipt Date: 20170228
  Transmission Date: 20170428
  Serious: Yes (Life-Threatening, Hospitalization)
  Sender: FDA-Public Use
  Company Number: US-LPDUSPRD-20170174

PATIENT
  Age: 60 Year
  Sex: Male

DRUGS (2)
  1. SIROLIMUS. [Suspect]
     Active Substance: SIROLIMUS
     Dosage: 2 MG DAILY
  2. CYCLOSPORINE INJECTION, USP (866-10) [Suspect]
     Active Substance: CYCLOSPORINE
     Dosage: 25 MG TWICE DAILY
     Route: 065

REACTIONS (7)
  - Escherichia bacteraemia [Unknown]
  - Lactobacillus infection [Unknown]
  - Respiratory failure [Unknown]
  - Kidney enlargement [Recovered/Resolved]
  - Septic shock [Unknown]
  - Abdominal discomfort [Unknown]
  - Abdominal abscess [Unknown]
